FAERS Safety Report 21639248 (Version 1)
Quarter: 2022Q4

REPORT INFORMATION
  Report Type: Spontaneous
  Country: US (occurrence: None)
  Receive Date: 20221124
  Receipt Date: 20221124
  Transmission Date: 20230113
  Serious: No
  Sender: FDA-Public Use
  Company Number: 2022A359502

PATIENT
  Sex: Female

DRUGS (1)
  1. PULMICORT FLEXHALER [Suspect]
     Active Substance: BUDESONIDE
     Route: 055

REACTIONS (4)
  - Dyspnoea [Unknown]
  - Visual impairment [Unknown]
  - Product dose omission issue [Unknown]
  - Device malfunction [Unknown]
